FAERS Safety Report 6443389-4 (Version None)
Quarter: 2009Q4

REPORT INFORMATION
  Report Type: 
  Country: None (occurrence: None)
  Receive Date: 20091113
  Receipt Date: 20091110
  Transmission Date: 20100525
  Serious: Yes (Hospitalization)
  Sender: FDA-Public Use
  Company Number: 20097553

PATIENT
  Sex: Male

DRUGS (1)
  1. LIORESAL [Suspect]
     Indication: MUSCLE SPASTICITY
     Dosage: 1100 MCG, DAILY, INTRATHECAL
     Route: 037

REACTIONS (5)
  - CONVULSION [None]
  - INJURY [None]
  - MALAISE [None]
  - OVERDOSE [None]
  - RESPIRATORY ARREST [None]
